FAERS Safety Report 7632270-0 (Version None)
Quarter: 2011Q3

REPORT INFORMATION
  Report Type: 
  Country: None (occurrence: None)
  Receive Date: 20110725
  Receipt Date: 20100721
  Transmission Date: 20111222
  Serious: No
  Sender: FDA-Public Use
  Company Number: US-BRISTOL-MYERS SQUIBB COMPANY-15188022

PATIENT
  Age: 88 Year
  Sex: Female

DRUGS (5)
  1. EYE DROPS [Concomitant]
  2. PREVACID [Concomitant]
  3. COZAAR [Concomitant]
  4. COUMADIN [Suspect]
     Dates: start: 20030101
  5. HYDROCHLOROTHIAZIDE [Concomitant]

REACTIONS (2)
  - SKIN EXFOLIATION [None]
  - PAIN IN EXTREMITY [None]
